FAERS Safety Report 7392044-5 (Version None)
Quarter: 2011Q2

REPORT INFORMATION
  Report Type: 
  Country: None (occurrence: None)
  Receive Date: 20110404
  Receipt Date: 20110322
  Transmission Date: 20111010
  Serious: Yes (Death)
  Sender: FDA-Public Use
  Company Number: US-CELGENEUS-163-21880-11032766

PATIENT
  Sex: Male

DRUGS (7)
  1. DARVOCET-N 50 [Concomitant]
     Dosage: 100 MILLIGRAM
     Route: 065
  2. REVLIMID [Suspect]
     Indication: MULTIPLE MYELOMA
     Dosage: 5 MILLIGRAM
     Route: 048
     Dates: start: 20101006, end: 20110228
  3. OXYCONTIN [Concomitant]
     Dosage: 10 MILLIGRAM
     Route: 065
  4. AMBIEN [Concomitant]
     Dosage: 5 MILLIGRAM
     Route: 065
  5. DEXAMETHASONE [Concomitant]
     Dosage: 1 MILLIGRAM
     Route: 065
  6. TRAVATAN [Concomitant]
     Dosage: 0.004%
     Route: 065
  7. HYDROCODONE BITARTRATE [Concomitant]
     Route: 065

REACTIONS (1)
  - DEATH [None]
